FAERS Safety Report 9143195 (Version 1)
Quarter: 2013Q1

REPORT INFORMATION
  Report Type: Spontaneous
  Country: US (occurrence: US)
  Receive Date: 20130306
  Receipt Date: 20130306
  Transmission Date: 20140127
  Serious: No
  Sender: FDA-Public Use
  Company Number: US-ENDO PHARMACEUTICALS INC.-OPER20090169

PATIENT
  Sex: Female

DRUGS (4)
  1. OPANA ER [Suspect]
     Indication: BACK PAIN
  2. LORTAB [Concomitant]
  3. LIDODERM PATCH [Concomitant]
  4. MUSCLE RELAXER (UNSPECIFIED) [Concomitant]

REACTIONS (5)
  - Local swelling [Not Recovered/Not Resolved]
  - Fear [None]
  - Apathy [None]
  - Drug ineffective [None]
  - Pyrexia [Unknown]
